FAERS Safety Report 8089969-4 (Version None)
Quarter: 2012Q1

REPORT INFORMATION
  Report Type: 
  Country: None (occurrence: None)
  Receive Date: 20120129
  Receipt Date: 20110922
  Transmission Date: 20120608
  Serious: No
  Sender: FDA-Public Use
  Company Number: US-ABBOTT-11P-163-0857164-00

PATIENT
  Age: 40 Year
  Sex: Female

DRUGS (4)
  1. BIRTH CONTROL PILLS [Concomitant]
     Indication: PRODUCT USED FOR UNKNOWN INDICATION
  2. HUMIRA [Suspect]
     Indication: PSORIASIS
  3. ZYRTEC [Concomitant]
     Indication: HYPERSENSITIVITY
     Dosage: DAILY
  4. WELLBUTRIN [Concomitant]
     Indication: DEPRESSION
     Route: 048

REACTIONS (2)
  - PSORIASIS [None]
  - NASOPHARYNGITIS [None]
